FAERS Safety Report 15629308 (Version 2)
Quarter: 2018Q4

REPORT INFORMATION
  Report Type: Spontaneous
  Country: ES (occurrence: ES)
  Receive Date: 20181117
  Receipt Date: 20181118
  Transmission Date: 20190205
  Serious: Yes (Other)
  Sender: FDA-Public Use
  Company Number: ES-TEVA-2018-ES-975212

PATIENT
  Age: 59 Year
  Sex: Female

DRUGS (3)
  1. MICOFENOLATO SODIO (7330SO) [Suspect]
     Active Substance: MYCOPHENOLATE SODIUM
     Indication: PROPHYLAXIS AGAINST TRANSPLANT REJECTION
     Dosage: 100 MILLIGRAM DAILY;
     Route: 048
     Dates: start: 201611
  2. PREDNISONA (886A) [Concomitant]
     Active Substance: PREDNISONE
     Indication: PROPHYLAXIS AGAINST TRANSPLANT REJECTION
     Dosage: 12.5 MILLIGRAM DAILY;
     Route: 048
     Dates: start: 201611
  3. ADVAGRAF 5 MG 30 CAPSULAS DURAS DE LIBERACION PROLONGADA, 30 C?PSULAS [Suspect]
     Active Substance: TACROLIMUS
     Indication: PROPHYLAXIS AGAINST TRANSPLANT REJECTION
     Route: 048
     Dates: start: 201611

REACTIONS (1)
  - Alopecia areata [Not Recovered/Not Resolved]

NARRATIVE: CASE EVENT DATE: 201701
